FAERS Safety Report 10024189 (Version 2)
Quarter: 2014Q1

REPORT INFORMATION
  Report Type: Report from Study
  Country: FI (occurrence: FI)
  Receive Date: 20140320
  Receipt Date: 20140320
  Transmission Date: 20141002
  Serious: Yes (Hospitalization, Other)
  Sender: FDA-Public Use
  Company Number: PHHY2014FI021853

PATIENT
  Age: 26 Year
  Sex: Male

DRUGS (8)
  1. LEPONEX [Suspect]
     Indication: SCHIZOPHRENIA
     Dosage: 400 MG, DAILY
     Route: 048
     Dates: start: 20130823, end: 20140219
  2. ABILIFY [Concomitant]
     Indication: SCHIZOPHRENIA
     Dosage: 15 MG, DAILY
     Route: 048
     Dates: start: 20140110
  3. VOXRA [Concomitant]
     Dosage: UNK UKN, QD
  4. CIPRALEX//ESCITALOPRAM [Concomitant]
     Dosage: 20 MG, BID
  5. RANOPRIN [Concomitant]
     Dosage: 40 MG, TID
  6. VESICARE [Concomitant]
     Dosage: 5 MG, QD
  7. TENOX (TEMAZEPAM) [Concomitant]
     Dosage: 20 MG, PRN (AS NEEDED)
  8. ANTABUS [Concomitant]
     Dosage: UNK UKN, UNK

REACTIONS (14)
  - Neutropenic infection [Recovered/Resolved]
  - Neutropenia [Recovered/Resolved]
  - Renal cyst [Unknown]
  - Pneumonia [Recovering/Resolving]
  - White blood cell count decreased [Recovering/Resolving]
  - Abdominal pain lower [Unknown]
  - C-reactive protein increased [Recovered/Resolved]
  - Blood creatinine increased [Unknown]
  - Rash [Unknown]
  - Differential white blood cell count abnormal [Not Recovered/Not Resolved]
  - Diarrhoea [Unknown]
  - Pyrexia [Recovered/Resolved]
  - Thrombocytosis [Recovering/Resolving]
  - Nausea [Unknown]
